FAERS Safety Report 10048044 (Version 1)
Quarter: 2014Q1

REPORT INFORMATION
  Report Type: Spontaneous
  Country: BR (occurrence: BR)
  Receive Date: 20140331
  Receipt Date: 20140331
  Transmission Date: 20141002
  Serious: Yes (Hospitalization, Other)
  Sender: FDA-Public Use
  Company Number: BR-PFIZER INC-2014085618

PATIENT
  Age: 55 Year
  Sex: Male
  Weight: 87 kg

DRUGS (7)
  1. LIPITOR [Suspect]
     Dosage: 10 MG, UNK
     Dates: start: 20130509
  2. ALDACTONE [Concomitant]
     Dosage: 25 MG, 1X/DAY
  3. ASPIRINA PREVENT [Concomitant]
     Dosage: UNK
  4. BRILINTA [Concomitant]
     Dosage: 90 MG, UNK
  5. BUDECORT AQUA [Concomitant]
     Indication: RHINITIS
     Dosage: UNK
     Route: 045
     Dates: start: 1994
  6. NIQUITIN [Concomitant]
     Indication: SMOKING CESSATION THERAPY
     Dosage: UNK
  7. WELLBUTRIN SR [Concomitant]
     Dosage: 300 MG, 1X/DAY

REACTIONS (4)
  - Acute myocardial infarction [Recovering/Resolving]
  - Arterial occlusive disease [Recovering/Resolving]
  - Ventricular dysfunction [Recovering/Resolving]
  - Dyslipidaemia [Unknown]
